FAERS Safety Report 9089788 (Version 1)
Quarter: 2013Q1

REPORT INFORMATION
  Report Type: Spontaneous
  Country: ES (occurrence: ES)
  Receive Date: 20130201
  Receipt Date: 20130201
  Transmission Date: 20140127
  Serious: Yes (Other)
  Sender: FDA-Public Use
  Company Number: ES-PFIZER INC-2013041694

PATIENT
  Age: 66 Year
  Sex: Male

DRUGS (9)
  1. ALDACTONE [Suspect]
     Dosage: UNK
     Route: 048
     Dates: start: 201108
  2. ACOVIL [Suspect]
     Dosage: UNK
     Route: 048
     Dates: start: 201108
  3. SILOSTAR [Suspect]
     Dosage: UNK
     Route: 048
     Dates: start: 201108
  4. TRANGOREX [Suspect]
     Indication: ATRIAL FLUTTER
     Dosage: UNK
     Route: 048
     Dates: start: 20110827, end: 20120830
  5. EMCONCOR COR [Concomitant]
  6. ELECOR [Concomitant]
  7. ADIRO [Concomitant]
  8. OMEPRAZOLE [Concomitant]
  9. SERC [Concomitant]

REACTIONS (1)
  - Hyperthyroidism [Unknown]
